FAERS Safety Report 5702905-8 (Version None)
Quarter: 2008Q2

REPORT INFORMATION
  Report Type: 
  Country: None (occurrence: None)
  Receive Date: 20080410
  Receipt Date: 20080410
  Transmission Date: 20081010
  Serious: No
  Sender: FDA-Public Use
  Company Number: None

PATIENT
  Age: 63 Year
  Sex: Female
  Weight: 65.7716 kg

DRUGS (1)
  1. ALORA [Suspect]
     Indication: OESTROGEN REPLACEMENT THERAPY
     Dosage: 00.1 2X WEEKLY
     Dates: start: 20071001, end: 20080401

REACTIONS (2)
  - PHARMACEUTICAL PRODUCT COMPLAINT [None]
  - SCRATCH [None]
